FAERS Safety Report 8116752-3 (Version None)
Quarter: 2012Q1

REPORT INFORMATION
  Report Type: 
  Country: None (occurrence: None)
  Receive Date: 20120206
  Receipt Date: 20120128
  Transmission Date: 20120608
  Serious: Yes (Hospitalization, Other)
  Sender: FDA-Public Use
  Company Number: PHHY2011DE14877

PATIENT
  Sex: Male
  Weight: 115 kg

DRUGS (13)
  1. LANTUS [Concomitant]
     Indication: DIABETES MELLITUS
     Dosage: 30 IU, QD
     Route: 058
     Dates: start: 20031221
  2. ADENURIC [Concomitant]
     Indication: HYPERURICAEMIA
     Dosage: 70 MG, QD
     Dates: start: 20110830
  3. EZETIMIBE [Concomitant]
     Indication: HYPERLIPIDAEMIA
     Dosage: 10/40 QD
     Route: 048
     Dates: start: 20110830
  4. ACTRAPID HUMAN [Concomitant]
     Indication: DIABETES MELLITUS
     Dosage: 20-10-16 IU,DAILY
     Route: 058
     Dates: start: 20110518
  5. RASILEZ [Suspect]
     Indication: HYPERTENSION
     Dosage: 1 DF, QD (300 MG)
     Route: 048
     Dates: start: 20071105, end: 20100822
  6. ALLOPURINOL [Concomitant]
     Dosage: 1 DF, QD
     Route: 048
     Dates: start: 19970626
  7. RAMIPRIL [Concomitant]
     Indication: HYPERTENSION
     Dosage: 10 MG, QD
     Route: 048
     Dates: start: 20110830
  8. HYDROCHLOROTHIAZIDE [Suspect]
     Dosage: 1 DF, QD
     Route: 048
     Dates: start: 20090323
  9. TORSEMIDE [Concomitant]
     Indication: HYPERTENSION
     Dosage: 10 MG, QD
     Route: 048
     Dates: start: 20110311
  10. METFORMIN HCL [Concomitant]
     Dosage: 1 DF, QD
     Route: 048
     Dates: start: 19980116
  11. SIMVAGAMMA 40 [Concomitant]
     Dosage: 1 DF, QD
     Route: 048
     Dates: start: 20081216
  12. GLIMEPIRIDE [Concomitant]
     Indication: DIABETES MELLITUS
     Dosage: 3 MG, QD
     Route: 048
     Dates: start: 20071126
  13. AMLODIPINE [Concomitant]
     Dosage: 1 DF, QD
     Route: 048
     Dates: start: 20060413

REACTIONS (5)
  - MYOCARDIAL ISCHAEMIA [None]
  - GASTRIC ULCER [None]
  - GASTRIC ULCER HAEMORRHAGE [None]
  - GASTRITIS [None]
  - IRON DEFICIENCY ANAEMIA [None]
